FAERS Safety Report 7428589-9 (Version None)
Quarter: 2011Q2

REPORT INFORMATION
  Report Type: 
  Country: None (occurrence: None)
  Receive Date: 20110415
  Receipt Date: 20110415
  Transmission Date: 20111010
  Serious: Yes (Other)
  Sender: FDA-Public Use
  Company Number: None

PATIENT
  Age: 54 Year
  Sex: Female

DRUGS (6)
  1. ACYCLOVIR [Concomitant]
  2. LEVOTHYROXINE SODIUM [Concomitant]
  3. PROCHLORPERAZINE TAB [Concomitant]
  4. ALENDRONATE SODIUM [Concomitant]
  5. REVLIMID [Suspect]
     Indication: AMYLOIDOSIS
     Dosage: 25MG DAILY ORALLY
     Route: 048
     Dates: start: 20110331, end: 20110409
  6. ASPIRIN [Concomitant]

REACTIONS (7)
  - DYSGEUSIA [None]
  - FATIGUE [None]
  - LIP SWELLING [None]
  - MUSCLE SPASMS [None]
  - DYSPHONIA [None]
  - SKIN EXFOLIATION [None]
  - NO THERAPEUTIC RESPONSE [None]
